FAERS Safety Report 8396810-9 (Version None)
Quarter: 2012Q1

REPORT INFORMATION
  Report Type: 
  Country: None (occurrence: None)
  Receive Date: 20120323
  Receipt Date: 20110519
  Transmission Date: 20120608
  Serious: Yes (Hospitalization)
  Sender: FDA-Public Use
  Company Number: 163-21880-11042364

PATIENT
  Age: 64 Year
  Sex: Female
  Weight: 82.5547 kg

DRUGS (14)
  1. DEXAMETHASONE [Concomitant]
  2. KCL (POTASSIUM CHLORIDE) (UNKNOWN) [Concomitant]
  3. POTASSIUM (POTASSIUM) (UNKNOWN) [Concomitant]
  4. COMPAZINE (PROCHLORPERAZINE EDISYLATE) (UNKNOWN) [Concomitant]
  5. GABAPENTIN (GABAPENTIN) (100 MILLIGRAM, UNKNOWN) [Concomitant]
  6. TUSSIONEX (UNKNOWN) [Concomitant]
  7. VELCADE [Concomitant]
  8. ASPIRIN [Concomitant]
  9. CALCIUM (CALCIUM) (UNKNOWN) [Concomitant]
  10. REVLIMID [Suspect]
     Indication: MULTIPLE MYELOMA
     Dosage: 15 MG, 1 IN 1 D, PO 25 MG, 1 IN 1 D, PO 15 MG, PO
     Route: 048
     Dates: start: 20110401, end: 20110408
  11. REVLIMID [Suspect]
     Indication: MULTIPLE MYELOMA
     Dosage: 15 MG, 1 IN 1 D, PO 25 MG, 1 IN 1 D, PO 15 MG, PO
     Route: 048
     Dates: start: 20110301
  12. REVLIMID [Suspect]
     Indication: MULTIPLE MYELOMA
     Dosage: 15 MG, 1 IN 1 D, PO 25 MG, 1 IN 1 D, PO 15 MG, PO
     Route: 048
     Dates: start: 20110501
  13. VITAMINS (VITAMINS) (UNKNOWN) [Concomitant]
  14. HCTZ (HYDROCHLOROTHIAZIDE) (UNKNOWN) [Concomitant]

REACTIONS (2)
  - RENAL FAILURE ACUTE [None]
  - MULTIPLE MYELOMA [None]
